FAERS Safety Report 13852846 (Version 1)
Quarter: 2017Q3

REPORT INFORMATION
  Report Type: Spontaneous
  Country: US (occurrence: US)
  Receive Date: 20170809
  Receipt Date: 20170809
  Transmission Date: 20171127
  Serious: No
  Sender: FDA-Public Use
  Company Number: US-ROCHE-752295

PATIENT
  Age: 64 Year
  Sex: Female
  Weight: 60 kg

DRUGS (4)
  1. BONIVA [Suspect]
     Active Substance: IBANDRONATE SODIUM
     Indication: OSTEOPOROSIS
     Route: 048
     Dates: start: 200908, end: 201003
  2. BONIVA [Suspect]
     Active Substance: IBANDRONATE SODIUM
     Route: 048
  3. CALCIUM [Concomitant]
     Active Substance: CALCIUM
     Route: 065
  4. MOBIC [Concomitant]
     Active Substance: MELOXICAM
     Route: 065

REACTIONS (3)
  - Rash [Recovered/Resolved]
  - Arthralgia [Recovering/Resolving]
  - Weight increased [Unknown]

NARRATIVE: CASE EVENT DATE: 20101216
